FAERS Safety Report 20671694 (Version 2)
Quarter: 2022Q2

REPORT INFORMATION
  Report Type: Spontaneous
  Country: NL (occurrence: NL)
  Receive Date: 20220405
  Receipt Date: 20220407
  Transmission Date: 20220721
  Serious: Yes (Hospitalization, Other)
  Sender: FDA-Public Use
  Company Number: NL-AUROBINDO-AUR-APL-2022-010313

PATIENT
  Age: 41 Year
  Sex: Female

DRUGS (2)
  1. VALPROATE SODIUM [Suspect]
     Active Substance: VALPROATE SODIUM
     Indication: Mood altered
     Dosage: 500 MILLIGRAM (EXTENTED RELEASE)
     Route: 065
  2. VALPROATE SODIUM [Suspect]
     Active Substance: VALPROATE SODIUM
     Indication: Product used for unknown indication
     Dosage: UNK (EXTENDED RELEASE)
     Route: 065

REACTIONS (7)
  - Neurotoxicity [Unknown]
  - Poisoning [Unknown]
  - Vomiting [Unknown]
  - Hypotension [Unknown]
  - Hyperammonaemia [Unknown]
  - Metabolic acidosis [Unknown]
  - Intentional overdose [Unknown]
